FAERS Safety Report 22634955 (Version 1)
Quarter: 2023Q2

REPORT INFORMATION
  Report Type: Spontaneous
  Country: US (occurrence: None)
  Receive Date: 20230622
  Receipt Date: 20230622
  Transmission Date: 20230721
  Serious: Yes (Hospitalization)
  Sender: FDA-Public Use
  Company Number: None

PATIENT
  Age: 13 Year
  Sex: Male
  Weight: 33.9 kg

DRUGS (1)
  1. SODIUM CHLORIDE [Suspect]
     Active Substance: SODIUM CHLORIDE
     Indication: Fluid replacement
     Dosage: OTHER FREQUENCY : ONE TIME;?
     Route: 040
     Dates: start: 20230621, end: 20230621

REACTIONS (9)
  - Swelling face [None]
  - Lip swelling [None]
  - Vomiting [None]
  - Swelling of eyelid [None]
  - Cough [None]
  - Oropharyngeal discomfort [None]
  - Tachycardia [None]
  - Dysphonia [None]
  - Procedural complication [None]

NARRATIVE: CASE EVENT DATE: 20230621
